FAERS Safety Report 9219663 (Version 1)
Quarter: 2013Q2

REPORT INFORMATION
  Report Type: Spontaneous
  Country: NL (occurrence: NL)
  Receive Date: 20130409
  Receipt Date: 20130409
  Transmission Date: 20140414
  Serious: Yes (Life-Threatening, Other)
  Sender: FDA-Public Use
  Company Number: NL-ROXANE LABORATORIES, INC.-2013-RO-00438RO

PATIENT
  Age: 53 Year
  Sex: Female

DRUGS (4)
  1. CITALOPRAM [Suspect]
  2. LORAZEPAM [Suspect]
     Indication: DEPRESSION
  3. VENLAFAXINE [Suspect]
     Indication: DEPRESSION
  4. AMITRIPTYLINE [Suspect]

REACTIONS (4)
  - Toxicity to various agents [Recovered/Resolved with Sequelae]
  - Haemodynamic instability [Recovered/Resolved]
  - Respiratory acidosis [Recovered/Resolved]
  - Laceration [Unknown]
